FAERS Safety Report 8629016 (Version 3)
Quarter: 2013Q2

REPORT INFORMATION
  Report Type: Spontaneous
  Country: US (occurrence: US)
  Receive Date: 20120621
  Receipt Date: 20130506
  Transmission Date: 20140414
  Serious: No
  Sender: FDA-Public Use
  Company Number: US-ASTRAZENECA-2012SE35524

PATIENT
  Age: 60 Year
  Sex: Female

DRUGS (17)
  1. ATENOLOL [Suspect]
     Route: 048
  2. NEXIUM [Suspect]
     Route: 048
  3. NEXIUM [Suspect]
     Route: 048
  4. NEXIUM [Suspect]
     Route: 048
  5. LISINOPRIL [Suspect]
     Route: 048
  6. LOSARTAN [Concomitant]
  7. CITRACAL D [Concomitant]
  8. CALCIUM [Concomitant]
  9. PRAVASTATIN [Concomitant]
  10. HUMULIN [Concomitant]
  11. PAROXETINE HCL [Concomitant]
  12. LEVOTHYROXINE [Concomitant]
  13. NYSTOP [Concomitant]
  14. LASIX [Concomitant]
  15. FLUTICASONE  FUROATE [Concomitant]
  16. NOVOLIN [Concomitant]
  17. ASPIRIN [Concomitant]

REACTIONS (15)
  - Type 2 diabetes mellitus [Unknown]
  - Hypertension [Unknown]
  - Secondary hypothyroidism [Unknown]
  - Obesity [Unknown]
  - Rhinitis allergic [Unknown]
  - Lymphadenopathy [Unknown]
  - Cough [Unknown]
  - Tonsillar hypertrophy [Unknown]
  - Lymphadenopathy [Unknown]
  - Reflux laryngitis [Unknown]
  - Essential hypertension [Unknown]
  - Acute sinusitis [Unknown]
  - Gastrooesophageal reflux disease [Unknown]
  - Cough [Unknown]
  - Intentional drug misuse [Unknown]
